FAERS Safety Report 6943827-4 (Version None)
Quarter: 2010Q3

REPORT INFORMATION
  Report Type: 
  Country: None (occurrence: None)
  Receive Date: 20100826
  Receipt Date: 20100817
  Transmission Date: 20110219
  Serious: Yes (Other)
  Sender: FDA-Public Use
  Company Number: A0861064A

PATIENT
  Age: 65 Year
  Sex: Female

DRUGS (7)
  1. LAMICTAL [Suspect]
     Indication: PARTIAL SEIZURES
     Dosage: 350MG PER DAY
     Route: 048
     Dates: start: 20030101
  2. ARICEPT [Concomitant]
  3. VALTREX [Concomitant]
  4. CRESTOR [Concomitant]
  5. SYMBICORT [Concomitant]
  6. METHYLPREDNISOLONE [Concomitant]
  7. LEVAQUIN [Concomitant]

REACTIONS (1)
  - PNEUMONIA [None]
